FAERS Safety Report 13931246 (Version 1)
Quarter: 2017Q3

REPORT INFORMATION
  Report Type: Spontaneous
  Country: DE (occurrence: DE)
  Receive Date: 20170903
  Receipt Date: 20170903
  Transmission Date: 20171127
  Serious: Yes (Other)
  Sender: FDA-Public Use
  Company Number: DE-BIOGEN-2017BI00452877

PATIENT
  Sex: Female

DRUGS (3)
  1. TYSABRI [Suspect]
     Active Substance: NATALIZUMAB
     Dosage: DOSE REDUCTION DURING PREGNANCY
     Route: 065
     Dates: end: 20151201
  2. TYSABRI [Suspect]
     Active Substance: NATALIZUMAB
     Dosage: DURING PREGNANCY
     Route: 065
     Dates: start: 201208
  3. TYSABRI [Suspect]
     Active Substance: NATALIZUMAB
     Indication: MULTIPLE SCLEROSIS
     Route: 065
     Dates: start: 201010, end: 201205

REACTIONS (3)
  - Maternal exposure during pregnancy [Recovered/Resolved]
  - Prescribed underdose [Recovered/Resolved]
  - Caesarean section [Recovered/Resolved]

NARRATIVE: CASE EVENT DATE: 20160128
